FAERS Safety Report 15720337 (Version 1)
Quarter: 2018Q4

REPORT INFORMATION
  Report Type: Spontaneous
  Country: US (occurrence: US)
  Receive Date: 20181213
  Receipt Date: 20181213
  Transmission Date: 20190205
  Serious: Yes (Hospitalization)
  Sender: FDA-Public Use
  Company Number: US-TEVA-2018-US-986416

PATIENT
  Age: 42 Year
  Sex: Female
  Weight: 71 kg

DRUGS (6)
  1. HYDROMORPHONE [Suspect]
     Active Substance: HYDROMORPHONE
     Indication: BREAKTHROUGH PAIN
     Dosage: 480 MILLIGRAM DAILY; 480 MG OF MORPHINE EQUIVALENTS DAILY
     Route: 065
  2. HYDROMORPHONE [Suspect]
     Active Substance: HYDROMORPHONE
     Indication: SICKLE CELL ANAEMIA WITH CRISIS
     Dosage: 384 MILLIGRAM DAILY; 384 MG OF MORPHINE EQUIVALENTS DAILY AS REQUIRED
     Route: 065
  3. ACETAMINOPHEN. [Concomitant]
     Active Substance: ACETAMINOPHEN
     Indication: BREAKTHROUGH PAIN
     Dosage: 2400 MILLIGRAM DAILY; 650MG EVERY 6 HOURS IF REQUIRED
     Route: 065
  4. METHADONE [Suspect]
     Active Substance: METHADONE HYDROCHLORIDE
     Indication: BREAKTHROUGH PAIN
     Dosage: 240 MILLIGRAM DAILY; 240 MG OF MORPHINE EQUIVALENTS DAILY
     Route: 065
  5. METHADONE [Suspect]
     Active Substance: METHADONE HYDROCHLORIDE
     Indication: SICKLE CELL ANAEMIA WITH CRISIS
     Dosage: 1200 MILLIGRAM DAILY; 1200 MG OF MORPHINE EQUIVALENTS DAILY
     Route: 065
  6. ACETAMINOPHEN. [Concomitant]
     Active Substance: ACETAMINOPHEN
     Indication: SICKLE CELL ANAEMIA WITH CRISIS

REACTIONS (1)
  - Hyperaesthesia [Recovered/Resolved]
